FAERS Safety Report 10236406 (Version 1)
Quarter: 2014Q2

REPORT INFORMATION
  Report Type: Spontaneous
  Country: US (occurrence: US)
  Receive Date: 20140613
  Receipt Date: 20140613
  Transmission Date: 20141212
  Serious: Yes (Other)
  Sender: FDA-Public Use
  Company Number: US-ACTAVIS-2014-13303

PATIENT
  Sex: Male

DRUGS (5)
  1. LAMOTRIGINE (WATSON LABORATORIES) [Suspect]
     Indication: CONVULSION
     Dosage: UNKNOWN
     Route: 065
  2. PHENOBARBITAL (UNKNOWN) [Suspect]
     Indication: CONVULSION
     Dosage: UNKNOWN
     Route: 065
  3. RUFINAMIDE [Suspect]
     Indication: CONVULSION
     Dosage: 300 MG, BID
     Route: 065
     Dates: start: 2011
  4. LEVETIRACETAM [Concomitant]
     Indication: CONVULSION
     Dosage: UNKNOWN
     Route: 065
     Dates: start: 2006
  5. TOPIRAMATE [Concomitant]
     Indication: CONVULSION
     Dosage: UNKNOWN
     Route: 065
     Dates: start: 2006

REACTIONS (3)
  - Stevens-Johnson syndrome [Unknown]
  - Rash [Unknown]
  - Drug hypersensitivity [Unknown]
